FAERS Safety Report 8190989-X (Version None)
Quarter: 2012Q1

REPORT INFORMATION
  Report Type: 
  Country: None (occurrence: None)
  Receive Date: 20120307
  Receipt Date: 20120228
  Transmission Date: 20120608
  Serious: Yes (Hospitalization, Other)
  Sender: FDA-Public Use
  Company Number: FR-EISAI INC-E3810-05351-SPO-FR

PATIENT
  Sex: Male

DRUGS (12)
  1. EQUANIL [Suspect]
     Indication: ANXIETY
     Route: 048
  2. EXELON [Suspect]
     Indication: MEMORY IMPAIRMENT
     Route: 048
     Dates: start: 20100329
  3. ATARAX [Suspect]
     Route: 048
     Dates: start: 20120126
  4. ATARAX [Suspect]
     Indication: ANXIETY
     Route: 048
     Dates: start: 20111220
  5. EQUANIL [Suspect]
     Route: 048
     Dates: start: 20111128
  6. MODOPAR [Suspect]
     Indication: EXTRAPYRAMIDAL DISORDER
     Route: 048
  7. RABEPRAZOLE SODIUM [Suspect]
     Route: 048
  8. EQUANIL [Suspect]
     Route: 048
     Dates: start: 20100329
  9. ALFUZOSIN HCL [Suspect]
     Indication: BENIGN PROSTATIC HYPERPLASIA
     Route: 048
  10. RISPERDAL [Suspect]
     Indication: AGITATION
     Route: 048
  11. XANAX [Suspect]
     Indication: ANXIETY
     Route: 048
  12. COZAAR [Suspect]
     Indication: HYPERTENSION
     Route: 048

REACTIONS (3)
  - MALAISE [None]
  - CONFUSIONAL STATE [None]
  - INFECTION [None]
